FAERS Safety Report 25231888 (Version 1)
Quarter: 2025Q2

REPORT INFORMATION
  Report Type: Report from Study
  Country: US (occurrence: US)
  Receive Date: 20250423
  Receipt Date: 20250423
  Transmission Date: 20250717
  Serious: Yes (Other)
  Sender: PFIZER
  Company Number: US-PFIZER INC-202500085593

PATIENT
  Age: 76 Year
  Sex: Male

DRUGS (2)
  1. LORBRENA [Suspect]
     Active Substance: LORLATINIB
     Dates: start: 20250403, end: 202504
  2. LORBRENA [Suspect]
     Active Substance: LORLATINIB
     Dates: start: 20250403, end: 202504

REACTIONS (3)
  - Hallucination [Unknown]
  - Mood altered [Unknown]
  - Pain [Unknown]

NARRATIVE: CASE EVENT DATE: 20250401
